FAERS Safety Report 6536642-7 (Version None)
Quarter: 2010Q1

REPORT INFORMATION
  Report Type: 
  Country: None (occurrence: None)
  Receive Date: 20100113
  Receipt Date: 20100105
  Transmission Date: 20100710
  Serious: Yes (Hospitalization)
  Sender: FDA-Public Use
  Company Number: US-JNJFOC-20090504980

PATIENT
  Sex: Female
  Weight: 55.9 kg

DRUGS (10)
  1. INFLIXIMAB [Suspect]
     Route: 042
     Dates: start: 20080508, end: 20090420
  2. INFLIXIMAB [Suspect]
     Route: 042
     Dates: start: 20080508, end: 20090420
  3. INFLIXIMAB [Suspect]
     Indication: CROHN'S DISEASE
     Route: 042
     Dates: start: 20080508, end: 20090420
  4. CIPROFLOXACIN [Concomitant]
     Indication: CROHN'S DISEASE
     Route: 048
  5. LORTAB [Concomitant]
  6. PREVACID [Concomitant]
     Route: 048
  7. ANTIHISTAMINES [Concomitant]
     Indication: PREMEDICATION
  8. ACETAMINOPHEN [Concomitant]
     Indication: PREMEDICATION
  9. STEROIDS NOS [Concomitant]
     Indication: PREMEDICATION
  10. FLAGYL [Concomitant]
     Indication: INFLAMMATORY BOWEL DISEASE

REACTIONS (1)
  - CROHN'S DISEASE [None]
